FAERS Safety Report 5664615-5 (Version None)
Quarter: 2008Q1

REPORT INFORMATION
  Report Type: 
  Country: None (occurrence: None)
  Receive Date: 20080314
  Receipt Date: 20080310
  Transmission Date: 20080703
  Serious: Yes (Other)
  Sender: FDA-Public Use
  Company Number: US-ASTRAZENECA-2008UW04864

PATIENT
  Age: 49 Year
  Sex: Male

DRUGS (4)
  1. NEXIUM [Suspect]
     Indication: ACIDOSIS
     Route: 048
     Dates: start: 20050101
  2. NEXIUM [Suspect]
     Route: 048
     Dates: start: 20080101
  3. LANTUS [Concomitant]
  4. GLYBURIDE [Concomitant]

REACTIONS (2)
  - CONSTIPATION [None]
  - HAEMATEMESIS [None]
